FAERS Safety Report 5742468-4 (Version None)
Quarter: 2008Q2

REPORT INFORMATION
  Report Type: 
  Country: None (occurrence: None)
  Receive Date: 20080519
  Receipt Date: 20080507
  Transmission Date: 20081010
  Serious: Yes (Other)
  Sender: FDA-Public Use
  Company Number: JP-NOVOPROD-275057

PATIENT
  Sex: Male
  Weight: 66 kg

DRUGS (3)
  1. PENFILL N CHU [Suspect]
     Indication: TYPE 2 DIABETES MELLITUS
     Dosage: 15 U, UNK
     Route: 058
     Dates: start: 20050301, end: 20080324
  2. ACTOS [Concomitant]
     Dosage: 15 MG, QD
     Route: 048
     Dates: start: 20050301
  3. AMARYL [Concomitant]
     Dosage: 3 MG, QD
     Route: 048
     Dates: start: 20050301

REACTIONS (4)
  - INJECTION SITE URTICARIA [None]
  - LOSS OF CONSCIOUSNESS [None]
  - SHOCK [None]
  - TREMOR [None]
